FAERS Safety Report 6036148-8 (Version None)
Quarter: 2009Q1

REPORT INFORMATION
  Report Type: 
  Country: None (occurrence: None)
  Receive Date: 20090113
  Receipt Date: 20090106
  Transmission Date: 20090719
  Serious: Yes (Death, Other)
  Sender: FDA-Public Use
  Company Number: ES-CELGENEUS-144-20484-09010311

PATIENT

DRUGS (2)
  1. INNOHEP [Suspect]
     Indication: DEEP VEIN THROMBOSIS
     Dosage: 175 IU ANTI-XA PER KG OF BODY WEIGHT
     Route: 058
  2. ACENOCOUMAROL [Suspect]
     Indication: DEEP VEIN THROMBOSIS
     Route: 048

REACTIONS (4)
  - DEEP VEIN THROMBOSIS [None]
  - HAEMORRHAGE [None]
  - NEOPLASM MALIGNANT [None]
  - PULMONARY EMBOLISM [None]
